FAERS Safety Report 7622415-0 (Version None)
Quarter: 2011Q3

REPORT INFORMATION
  Report Type: 
  Country: None (occurrence: None)
  Receive Date: 20110720
  Receipt Date: 20110222
  Transmission Date: 20111222
  Serious: No
  Sender: FDA-Public Use
  Company Number: US-MYLANLABS-2011S1001076

PATIENT
  Age: 82 Year
  Sex: Female
  Weight: 58.06 kg

DRUGS (12)
  1. TRAMADOL HYDROCHLORIDE [Suspect]
     Indication: BACK PAIN
     Route: 048
     Dates: start: 20101001, end: 20101001
  2. TRAMADOL HYDROCHLORIDE [Suspect]
     Route: 048
     Dates: start: 20110112, end: 20110113
  3. LIPITOR [Concomitant]
     Indication: BLOOD CHOLESTEROL
  4. VITAMINS NOS [Concomitant]
  5. TRAMADOL HYDROCHLORIDE [Suspect]
     Indication: SCIATICA
     Route: 048
     Dates: start: 20101001, end: 20101001
  6. TRAMADOL HYDROCHLORIDE [Suspect]
     Route: 048
     Dates: start: 20110112, end: 20110113
  7. METOPROLOL TARTRATE [Concomitant]
     Indication: CARDIAC DISORDER
  8. CALCIUM + VITAMIN D [Concomitant]
  9. CELEBREX [Concomitant]
  10. TYLENOL (CAPLET) [Concomitant]
  11. ASPIRIN [Concomitant]
  12. FISH OIL [Concomitant]

REACTIONS (5)
  - VOMITING [None]
  - NAUSEA [None]
  - DRUG INTOLERANCE [None]
  - ABDOMINAL DISCOMFORT [None]
  - DIZZINESS [None]
